FAERS Safety Report 17192777 (Version 4)
Quarter: 2021Q4

REPORT INFORMATION
  Report Type: Spontaneous
  Country: US (occurrence: US)
  Receive Date: 20191223
  Receipt Date: 20211019
  Transmission Date: 20220303
  Serious: No
  Sender: FDA-Public Use
  Company Number: US-SA-2019SA354047

PATIENT
  Age: 45 Year
  Sex: Male

DRUGS (9)
  1. DUPIXENT [Suspect]
     Active Substance: DUPILUMAB
     Indication: Dermatitis atopic
     Dosage: 300 MG, QOW
     Route: 058
     Dates: start: 20191017
  2. DUPIXENT [Suspect]
     Active Substance: DUPILUMAB
     Dosage: 300 MG, QOW
     Route: 058
     Dates: start: 2019
  3. BREO ELLIPTA [Concomitant]
     Active Substance: FLUTICASONE FUROATE\VILANTEROL TRIFENATATE
  4. MONTELUKAST [Concomitant]
     Active Substance: MONTELUKAST SODIUM
  5. FLONASE [Concomitant]
     Active Substance: FLUTICASONE PROPIONATE
     Dosage: UNK
  6. DYMISTA [Concomitant]
     Active Substance: AZELASTINE HYDROCHLORIDE\FLUTICASONE PROPIONATE
  7. VENTOLIN HFA [Concomitant]
     Active Substance: ALBUTEROL SULFATE
  8. TACROLIMUS [Concomitant]
     Active Substance: TACROLIMUS
  9. TRIAMCINOLONE [Concomitant]
     Active Substance: TRIAMCINOLONE

REACTIONS (3)
  - Dermatitis atopic [Recovered/Resolved]
  - Eczema [Recovered/Resolved]
  - Hernia repair [Recovered/Resolved]

NARRATIVE: CASE EVENT DATE: 20191101
